FAERS Safety Report 8094009-7 (Version None)
Quarter: 2012Q1

REPORT INFORMATION
  Report Type: 
  Country: None (occurrence: None)
  Receive Date: 20120131
  Receipt Date: 20120125
  Transmission Date: 20120608
  Serious: Yes (Death, Other)
  Sender: FDA-Public Use
  Company Number: PHHY2012CA007200

PATIENT
  Sex: Male

DRUGS (4)
  1. INSULIN [Concomitant]
  2. ALISKIREN [Suspect]
     Dosage: 150 MG
  3. DIURETICS [Concomitant]
  4. ASPIRIN [Concomitant]

REACTIONS (2)
  - ARRHYTHMIA [None]
  - DEATH [None]
